FAERS Safety Report 22352115 (Version 2)
Quarter: 2023Q2

REPORT INFORMATION
  Report Type: Spontaneous
  Country: PT (occurrence: PT)
  Receive Date: 20230522
  Receipt Date: 20230525
  Transmission Date: 20230722
  Serious: Yes (Other)
  Sender: FDA-Public Use
  Company Number: PT-ROCHE-3347040

PATIENT
  Age: 61 Year
  Sex: Female

DRUGS (1)
  1. TRASTUZUMAB [Suspect]
     Active Substance: TRASTUZUMAB
     Indication: Product used for unknown indication
     Dosage: UNK
     Route: 065

REACTIONS (15)
  - Mitral valve incompetence [Unknown]
  - Pericardial effusion [Unknown]
  - Thrombocytopenia [Unknown]
  - Rectal haemorrhage [Unknown]
  - Decreased appetite [Unknown]
  - Constipation [Unknown]
  - Mucosal inflammation [Unknown]
  - Radiation skin injury [Unknown]
  - Lymphadenopathy [Unknown]
  - Pain [Unknown]
  - Headache [Unknown]
  - Anxiety [Unknown]
  - Dyslipidaemia [Unknown]
  - Splenomegaly [Unknown]
  - Myalgia [Unknown]
